FAERS Safety Report 26185705 (Version 1)
Quarter: 2025Q4

REPORT INFORMATION
  Report Type: Spontaneous
  Country: CN (occurrence: CN)
  Receive Date: 20251222
  Receipt Date: 20251222
  Transmission Date: 20260118
  Serious: Yes (Hospitalization)
  Sender: BAXTER
  Company Number: None

PATIENT
  Age: 51 Year
  Sex: Female
  Weight: 51 kg

DRUGS (4)
  1. CYCLOPHOSPHAMIDE [Suspect]
     Active Substance: CYCLOPHOSPHAMIDE
     Indication: Gestational trophoblastic tumour
     Dosage: 0.9 G, QD COMBINED WITH 0.9% SODIUM CHLORIDE (100 ML)
     Route: 041
     Dates: start: 20251023, end: 20251023
  2. SODIUM CHLORIDE [Suspect]
     Active Substance: SODIUM CHLORIDE
     Dosage: 0.9% INJECTION, 100 ML, IVGTT; COMBINED WITH CYCLOPHOSPHAMIDE FOR INJECTION
     Route: 041
     Dates: start: 20251023
  3. SODIUM CHLORIDE [Suspect]
     Active Substance: SODIUM CHLORIDE
     Dosage: 0.9% INJECTION, 500 ML, IVGTT; COMBINED WITH VINDESINE SULFATE FOR INJECTION
     Route: 041
     Dates: start: 20251023
  4. VINDESINE SULFATE [Suspect]
     Active Substance: VINDESINE SULFATE
     Indication: Gestational trophoblastic tumour
     Dosage: 4.5 MG, QD COMBINED WITH 0.9% SODIUM CHLORIDE (500 ML)
     Route: 041
     Dates: start: 20251023, end: 20251023

REACTIONS (1)
  - Platelet count decreased [Recovering/Resolving]

NARRATIVE: CASE EVENT DATE: 20251026
